FAERS Safety Report 9464532 (Version 2)
Quarter: 2014Q2

REPORT INFORMATION
  Report Type: Report from Study
  Country: CA (occurrence: CA)
  Receive Date: 20130819
  Receipt Date: 20140408
  Transmission Date: 20141212
  Serious: Yes (Disabling, Other)
  Sender: FDA-Public Use
  Company Number: CA-SANOFI-AVENTIS-2013SA081165

PATIENT
  Age: 64 Year
  Sex: Male
  Weight: 83 kg

DRUGS (15)
  1. DOCETAXEL [Suspect]
     Indication: PRODUCT USED FOR UNKNOWN INDICATION
     Dosage: FORM: SOLUTION INTRAVENOUS
     Route: 065
  2. HERCEPTIN [Suspect]
     Indication: PRODUCT USED FOR UNKNOWN INDICATION
     Dosage: FORM:VIAL
     Route: 042
  3. HERCEPTIN [Suspect]
     Indication: PRODUCT USED FOR UNKNOWN INDICATION
     Dosage: FORM:VIAL
     Route: 042
  4. HERCEPTIN [Suspect]
     Indication: PRODUCT USED FOR UNKNOWN INDICATION
     Dosage: FORM:VIAL
     Route: 042
  5. HERCEPTIN [Suspect]
     Indication: PRODUCT USED FOR UNKNOWN INDICATION
     Dosage: FORM:VIAL?FREQUENCY:1 EVERY 2 WEEK
     Route: 042
  6. HERCEPTIN [Suspect]
     Indication: PRODUCT USED FOR UNKNOWN INDICATION
     Dosage: FORM:POWDER FOR SOLUTION INTRAVENOUS?VIAL
     Route: 042
  7. HERCEPTIN [Suspect]
     Indication: PRODUCT USED FOR UNKNOWN INDICATION
     Dosage: FORM:VIAL?FREQUENCY:1 EVERY 2 WEEK
     Route: 042
  8. XELODA [Suspect]
     Indication: PRODUCT USED FOR UNKNOWN INDICATION
     Route: 048
  9. AVALIDE [Concomitant]
  10. DILAUDID [Concomitant]
  11. DOCUSATE [Concomitant]
  12. PANTOLOC [Concomitant]
     Dosage: TABLET (ENTERIC COATED)
  13. PANTOPRAZOLE [Concomitant]
  14. PREDNISOLONE [Concomitant]
  15. SENOKOT /UNK/ [Concomitant]

REACTIONS (22)
  - Abscess oral [Unknown]
  - Arthralgia [Unknown]
  - Blood pressure increased [Unknown]
  - Dyspnoea [Unknown]
  - Eosinophil count increased [Unknown]
  - Fatigue [Unknown]
  - Hepatic mass [Unknown]
  - Mouth haemorrhage [Unknown]
  - Pulmonary embolism [Unknown]
  - Tooth abscess [Unknown]
  - White blood cell count decreased [Recovering/Resolving]
  - Blood magnesium decreased [Unknown]
  - Monocyte count decreased [Unknown]
  - Lymphocyte count decreased [Unknown]
  - Eosinophil count decreased [Unknown]
  - Lymphocyte count decreased [Unknown]
  - Monocyte count increased [Unknown]
  - Red cell distribution width decreased [Unknown]
  - Red blood cell count decreased [Unknown]
  - Haemoglobin decreased [Unknown]
  - Haematocrit decreased [Unknown]
  - Platelet count decreased [Unknown]
